FAERS Safety Report 21113671 (Version 1)
Quarter: 2022Q3

REPORT INFORMATION
  Report Type: Spontaneous
  Country: CN (occurrence: CN)
  Receive Date: 20220721
  Receipt Date: 20220721
  Transmission Date: 20221027
  Serious: Yes (Other)
  Sender: FDA-Public Use
  Company Number: CN-PFIZER INC-PV202200027148

PATIENT
  Age: 13 Year
  Sex: Male
  Weight: 48.5 kg

DRUGS (2)
  1. METHYLPREDNISOLONE SODIUM SUCCINATE [Suspect]
     Active Substance: METHYLPREDNISOLONE SODIUM SUCCINATE
     Indication: Encephalitis
     Dosage: 0.97 G, 1X/DAY
     Route: 041
     Dates: start: 20220719, end: 20220719
  2. DEXTROSE [Concomitant]
     Active Substance: DEXTROSE
     Indication: Encephalitis
     Dosage: 250 ML, 1X/DAY
     Route: 041
     Dates: start: 20220719, end: 20220719

REACTIONS (3)
  - Urticaria [Recovering/Resolving]
  - Rash [Recovering/Resolving]
  - Pruritus [Recovering/Resolving]

NARRATIVE: CASE EVENT DATE: 20220719
